FAERS Safety Report 12904696 (Version 1)
Quarter: 2016Q4

REPORT INFORMATION
  Report Type: Spontaneous
  Country: PT (occurrence: PT)
  Receive Date: 20161102
  Receipt Date: 20161102
  Transmission Date: 20170207
  Serious: Yes (Other)
  Sender: FDA-Public Use
  Company Number: PT-TEVA-705864ISR

PATIENT
  Sex: Female
  Weight: 32 kg

DRUGS (3)
  1. ESOMEPRAZOL RATIOPHARM [Suspect]
     Active Substance: ESOMEPRAZOLE
     Dosage: 20 MILLIGRAM DAILY;
     Route: 048
     Dates: start: 20160914
  2. DEBRIDAT 200 [Concomitant]
     Dosage: 400 MILLIGRAM DAILY;
     Route: 048
  3. POTASSIUM CHLORIDE. [Concomitant]
     Active Substance: POTASSIUM CHLORIDE
     Route: 065

REACTIONS (8)
  - Product formulation issue [Unknown]
  - Nausea [Unknown]
  - Myalgia [Not Recovered/Not Resolved]
  - Chills [Not Recovered/Not Resolved]
  - Chest discomfort [Not Recovered/Not Resolved]
  - Malaise [Unknown]
  - Body temperature decreased [Not Recovered/Not Resolved]
  - Oral mucosal erythema [Not Recovered/Not Resolved]
